FAERS Safety Report 16360588 (Version 3)
Quarter: 2020Q3

REPORT INFORMATION
  Report Type: Spontaneous
  Country: US (occurrence: US)
  Receive Date: 20190528
  Receipt Date: 20200929
  Transmission Date: 20201102
  Serious: Yes (Other)
  Sender: FDA-Public Use
  Company Number: US-RECKITT BENCKISER HEALTHCARE INT LIMITED-RB-85775-2019

PATIENT
  Age: 76 Year
  Sex: Female

DRUGS (7)
  1. GLUCOPHAGE [Concomitant]
     Active Substance: METFORMIN HYDROCHLORIDE
     Indication: PRODUCT USED FOR UNKNOWN INDICATION
     Dosage: 1000 MILLIGRAM, BID, 2 TABLETS BY MOUTH 2 TIMES A DAY WITH FOOD
     Route: 048
     Dates: start: 20190328, end: 20190706
  2. MUCINEX DM MAXIMUM STRENGTH [Suspect]
     Active Substance: DEXTROMETHORPHAN HYDROBROMIDE\GUAIFENESIN
     Indication: PRODUCT USED FOR UNKNOWN INDICATION
     Dosage: 1200 MILLIGRAM, BID
     Route: 065
     Dates: start: 20190515, end: 20190518
  3. PROTONIX [Concomitant]
     Active Substance: PANTOPRAZOLE SODIUM
     Indication: PRODUCT USED FOR UNKNOWN INDICATION
     Dosage: 40 MILLIGRAM, QD
     Route: 048
     Dates: start: 20190603
  4. GLUCOTROL [Concomitant]
     Active Substance: GLIPIZIDE
     Indication: PRODUCT USED FOR UNKNOWN INDICATION
     Dosage: 10 MILLIGRAM, BID, 30 MINUTES BEFORE MEALS
     Route: 048
     Dates: start: 20190618
  5. TENORMIN [Concomitant]
     Active Substance: ATENOLOL
     Indication: PRODUCT USED FOR UNKNOWN INDICATION
     Dosage: 25 MILLIGRAM, QD, TOOK 1 TABLET BY MOUTH DAILY
     Route: 048
     Dates: start: 20190328, end: 20190706
  6. ZITHROMAX [Concomitant]
     Active Substance: AZITHROMYCIN DIHYDRATE
     Indication: PRODUCT USED FOR UNKNOWN INDICATION
     Dosage: TOOK 2 TABLETS ON DAY 1 AND TOOK 1 TABLET DAILY ON DAY 2 THROUGH 5
     Route: 048
     Dates: start: 20190611, end: 20190626
  7. ZOCOR [Concomitant]
     Active Substance: SIMVASTATIN
     Indication: PRODUCT USED FOR UNKNOWN INDICATION
     Dosage: 80 MILLIGRAM, QD, TOOK 1 TABLET BY MOUTH EVERY EVENING
     Route: 048
     Dates: start: 20181008, end: 20190706

REACTIONS (6)
  - Chondropathy [Unknown]
  - Myelofibrosis [Unknown]
  - Haemangioma [Unknown]
  - Blood glucose increased [Recovered/Resolved]
  - Hyperhidrosis [Recovered/Resolved]
  - Metastasis [Unknown]

NARRATIVE: CASE EVENT DATE: 20190515
